FAERS Safety Report 4901985-7 (Version None)
Quarter: 2006Q1

REPORT INFORMATION
  Report Type: 
  Country: None (occurrence: None)
  Receive Date: 20060201
  Receipt Date: 20060201
  Transmission Date: 20060701
  Serious: Yes (Hospitalization)
  Sender: FDA-Public Use
  Company Number: None

PATIENT
  Sex: Male
  Weight: 151.8 kg

DRUGS (12)
  1. CIPROFLOXACIN [Suspect]
     Indication: PROSTATITIS
     Dosage: 500 MG BID PO
     Route: 048
     Dates: start: 20051007, end: 20051008
  2. CIPROFLOXACIN [Suspect]
     Indication: URINARY TRACT INFECTION
     Dosage: 500 MG BID PO
     Route: 048
     Dates: start: 20051007, end: 20051008
  3. NITROGLYCERINE SL [Concomitant]
  4. CHOLESTYRAMINE [Concomitant]
  5. POTASSIUM CHLORIDE [Concomitant]
  6. GALANTAMINE [Concomitant]
  7. OMEPRAZOLE [Concomitant]
  8. SERTRALINE [Concomitant]
  9. CYANOCOBALAMIN [Concomitant]
  10. RISPERIDONE [Concomitant]
  11. LOPERIMIDE [Concomitant]
  12. FOLIC ACID [Concomitant]

REACTIONS (3)
  - DYSPNOEA [None]
  - SWELLING FACE [None]
  - SWOLLEN TONGUE [None]
